FAERS Safety Report 6352574-1 (Version None)
Quarter: 2009Q3

REPORT INFORMATION
  Report Type: 
  Country: None (occurrence: None)
  Receive Date: 20090912
  Receipt Date: 20090622
  Transmission Date: 20100115
  Serious: No
  Sender: FDA-Public Use
  Company Number: US-ABBOTT-08P-163-0443044-00

PATIENT
  Sex: Male
  Weight: 95.5 kg

DRUGS (9)
  1. HUMIRA [Suspect]
     Indication: RHEUMATOID ARTHRITIS
     Route: 058
     Dates: start: 20080314
  2. HUMIRA [Suspect]
     Indication: PSORIASIS
  3. HUMIRA [Suspect]
     Indication: PSORIATIC ARTHROPATHY
  4. ETANERCEPT [Concomitant]
     Indication: RHEUMATOID ARTHRITIS
     Route: 050
  5. ETANERCEPT [Concomitant]
     Indication: PSORIATIC ARTHROPATHY
  6. ETANERCEPT [Concomitant]
     Indication: PSORIASIS
  7. INDOMETHACIN [Concomitant]
     Indication: INFLAMMATION
     Route: 048
  8. INDOMETHACIN [Concomitant]
     Indication: RHEUMATOID ARTHRITIS
  9. INDOMETHACIN [Concomitant]
     Indication: PSORIATIC ARTHROPATHY

REACTIONS (3)
  - INCORRECT DOSE ADMINISTERED [None]
  - INJECTION SITE EXTRAVASATION [None]
  - WRONG TECHNIQUE IN DRUG USAGE PROCESS [None]
